FAERS Safety Report 8984910 (Version 2)
Quarter: 2013Q1

REPORT INFORMATION
  Report Type: Spontaneous
  Country: US (occurrence: US)
  Receive Date: 20121225
  Receipt Date: 20130110
  Transmission Date: 20140127
  Serious: No
  Sender: FDA-Public Use
  Company Number: US-009507513-1212USA009599

PATIENT
  Sex: Male

DRUGS (2)
  1. PEG-INTRON [Suspect]
     Indication: HEPATITIS C
     Dosage: UNK
     Dates: start: 20121216, end: 20121227
  2. RIBAVIRIN [Suspect]
     Indication: HEPATITIS C
     Dosage: UNK
     Dates: start: 20121216, end: 20121227

REACTIONS (5)
  - Arthralgia [Unknown]
  - Arthritis [Unknown]
  - White blood cell count decreased [Unknown]
  - Leukopenia [Unknown]
  - Malaise [Unknown]
